APPROVED DRUG PRODUCT: HYDROCORTISONE
Active Ingredient: HYDROCORTISONE
Strength: 20MG
Dosage Form/Route: TABLET;ORAL
Application: A214649 | Product #003 | TE Code: AB
Applicant: AUROBINDO PHARMA LTD
Approved: Jul 17, 2023 | RLD: No | RS: No | Type: RX